FAERS Safety Report 16366737 (Version 1)
Quarter: 2019Q3

REPORT INFORMATION
  Report Type: Spontaneous
  Country: US (occurrence: US)
  Receive Date: 20190528
  Receipt Date: 20190528
  Transmission Date: 20191004
  Serious: Yes (Disabling)
  Sender: FDA-Public Use
  Company Number: None

PATIENT
  Age: 55 Year
  Sex: Female
  Weight: 76.5 kg

DRUGS (2)
  1. MULTIVITAMIN [Concomitant]
     Active Substance: VITAMINS
  2. CYMBALTA [Suspect]
     Active Substance: DULOXETINE HYDROCHLORIDE
     Indication: FIBROMYALGIA
     Dosage: ?          QUANTITY:1 CAPSULE(S);?
     Route: 048

REACTIONS (13)
  - Dizziness [None]
  - Anxiety [None]
  - Vision blurred [None]
  - Sexual dysfunction [None]
  - Dry eye [None]
  - Depression [None]
  - Enuresis [None]
  - Fibromyalgia [None]
  - Dry mouth [None]
  - Heart rate increased [None]
  - Vulvovaginal dryness [None]
  - Headache [None]
  - Migraine [None]

NARRATIVE: CASE EVENT DATE: 20170601
